FAERS Safety Report 21740452 (Version 1)
Quarter: 2022Q4

REPORT INFORMATION
  Report Type: Spontaneous
  Country: US (occurrence: US)
  Receive Date: 20221216
  Receipt Date: 20221216
  Transmission Date: 20230113
  Serious: No
  Sender: FDA-Public Use
  Company Number: US-PFIZER INC-202201372425

PATIENT
  Age: 9 Decade
  Sex: Male

DRUGS (3)
  1. PAXLOVID [Suspect]
     Active Substance: NIRMATRELVIR\RITONAVIR
     Indication: COVID-19 treatment
     Dosage: [PF-07321332 300 MG]/[RITONAVIR 100 MG]; 2X/DAY
     Dates: start: 20221211, end: 20221211
  2. PAXLOVID [Suspect]
     Active Substance: NIRMATRELVIR\RITONAVIR
     Dosage: [PF-07321332 300 MG]/[RITONAVIR 100 MG]; MORNING, [PF-07321332 450 MG]/[RITONAVIR 100 MG]; EVENING
     Dates: start: 20221212, end: 20221212
  3. PAXLOVID [Suspect]
     Active Substance: NIRMATRELVIR\RITONAVIR
     Dosage: [RITONAVIR 200 MG] MORNING
     Dates: start: 20221213

REACTIONS (3)
  - Incorrect dose administered [Unknown]
  - Product label issue [Unknown]
  - Malaise [Unknown]

NARRATIVE: CASE EVENT DATE: 20221212
